FAERS Safety Report 23997576 (Version 1)
Quarter: 2024Q2

REPORT INFORMATION
  Report Type: Spontaneous
  Country: US (occurrence: US)
  Receive Date: 20240621
  Receipt Date: 20240621
  Transmission Date: 20240716
  Serious: No
  Sender: FDA-Public Use
  Company Number: US-BRAEBURN-US-BRA-24-000459

PATIENT
  Sex: Female

DRUGS (2)
  1. BRIXADI [Suspect]
     Active Substance: BUPRENORPHINE
     Indication: Drug abuse
     Dosage: 8 MILLIGRAM, WEEKLY
     Route: 058
     Dates: start: 202403
  2. BRIXADI [Suspect]
     Active Substance: BUPRENORPHINE
     Indication: Drug dependence

REACTIONS (3)
  - Influenza [Unknown]
  - Nausea [Unknown]
  - Constipation [Unknown]

NARRATIVE: CASE EVENT DATE: 20240101
